FAERS Safety Report 4393182-1 (Version None)
Quarter: 2004Q3

REPORT INFORMATION
  Report Type: 
  Country: None (occurrence: None)
  Receive Date: 20040702
  Receipt Date: 20040625
  Transmission Date: 20050211
  Serious: Yes (Hospitalization)
  Sender: FDA-Public Use
  Company Number: 2004-06-1701

PATIENT
  Age: 72 Year
  Sex: Female

DRUGS (3)
  1. INTRON A [Suspect]
     Indication: MALIGNANT MELANOMA
     Dosage: UNK-18 MIU* SUBCUTANEOUS
     Route: 058
     Dates: start: 20000612, end: 20031001
  2. INTRON A [Suspect]
     Indication: MALIGNANT MELANOMA
     Dosage: UNK-18 MIU* SUBCUTANEOUS
     Route: 058
     Dates: start: 20000612
  3. INTRON A [Suspect]
     Indication: MALIGNANT MELANOMA
     Dosage: UNK-18 MIU* SUBCUTANEOUS
     Route: 058
     Dates: start: 20031001

REACTIONS (5)
  - DEMYELINATION [None]
  - LOSS OF CONSCIOUSNESS [None]
  - MALIGNANT MELANOMA [None]
  - MALIGNANT NEOPLASM PROGRESSION [None]
  - TREMOR [None]
